FAERS Safety Report 10517775 (Version 1)
Quarter: 2014Q4

REPORT INFORMATION
  Report Type: Spontaneous
  Country: BR (occurrence: BR)
  Receive Date: 20141015
  Receipt Date: 20141015
  Transmission Date: 20150528
  Serious: Yes (Other)
  Sender: FDA-Public Use
  Company Number: BR-ABBVIE-14K-020-1294272-00

PATIENT
  Age: 82 Year
  Sex: Female
  Weight: 57 kg

DRUGS (6)
  1. HUMIRA [Suspect]
     Active Substance: ADALIMUMAB
     Indication: RHEUMATOID ARTHRITIS
     Route: 058
     Dates: start: 20110325, end: 20140301
  2. ACETYLSALICYLIC ACID [Concomitant]
     Active Substance: ASPIRIN
     Indication: ARTHRITIS
     Route: 048
     Dates: start: 19840101
  3. LEFLUNOMIDE. [Concomitant]
     Active Substance: LEFLUNOMIDE
     Indication: RHEUMATOID ARTHRITIS
     Route: 048
     Dates: start: 20140801
  4. BROMAZEPAM [Concomitant]
     Active Substance: BROMAZEPAM
     Indication: INSOMNIA
     Dosage: BEFORE SLEEPING
     Route: 048
     Dates: start: 19840101
  5. CYTIDINE/URIDINE/HYDROXOCOBALAMIN ACETATE/LIDOCAINE(ETNA) [Concomitant]
     Indication: NEUROPATHY PERIPHERAL
     Route: 048
     Dates: start: 20141008
  6. METICORTEN [Concomitant]
     Active Substance: PREDNISONE
     Indication: RHEUMATOID ARTHRITIS
     Route: 048
     Dates: start: 19740101

REACTIONS (5)
  - Prosthesis user [Unknown]
  - Rectal prolapse [Recovered/Resolved]
  - Fall [Recovered/Resolved]
  - Hypoaesthesia [Not Recovered/Not Resolved]
  - Arthralgia [Recovering/Resolving]

NARRATIVE: CASE EVENT DATE: 20140819
